FAERS Safety Report 6200440-4 (Version None)
Quarter: 2009Q2

REPORT INFORMATION
  Report Type: 
  Country: None (occurrence: None)
  Receive Date: 20090522
  Receipt Date: 20090508
  Transmission Date: 20091009
  Serious: Yes (Other)
  Sender: FDA-Public Use
  Company Number: GB-GENENTECH-229069

PATIENT
  Age: 36 Year
  Sex: Female

DRUGS (4)
  1. HERCEPTIN [Suspect]
     Indication: BREAST CANCER
     Dosage: 441 MG, UNK
     Route: 064
     Dates: end: 20060725
  2. HERCEPTIN [Suspect]
     Dosage: 588 MG, SINGLE
  3. TAMOXIFEN CITRATE [Suspect]
     Indication: BREAST CANCER
     Dosage: 20 MG, QD
     Route: 048
  4. ZOLADEX [Suspect]
     Indication: BREAST CANCER
     Dosage: 3.6 G, Q4W
     Route: 065

REACTIONS (1)
  - CAESAREAN SECTION [None]
